FAERS Safety Report 9851245 (Version 1)
Quarter: 2014Q1

REPORT INFORMATION
  Report Type: Spontaneous
  Country: PT (occurrence: PT)
  Receive Date: 20140128
  Receipt Date: 20140128
  Transmission Date: 20141002
  Serious: Yes (Other)
  Sender: FDA-Public Use
  Company Number: PT-009507513-1401PRT011538

PATIENT
  Age: 37 Year
  Sex: Male
  Weight: 73 kg

DRUGS (3)
  1. VICTRELIS [Suspect]
     Indication: HEPATITIS C
     Dosage: VALIDADE: 30-11-2013
     Route: 048
     Dates: start: 20130403, end: 20131106
  2. PEGASYS [Concomitant]
     Indication: HEPATITIS C
     Dates: start: 20130306
  3. COPEGUS [Concomitant]
     Indication: HEPATITIS C
     Dates: start: 20130306

REACTIONS (11)
  - Haemorrhage [Unknown]
  - Anaemia [Unknown]
  - Chest discomfort [Unknown]
  - Depression [Unknown]
  - Fatigue [Unknown]
  - Headache [Unknown]
  - Photosensitivity reaction [Unknown]
  - Syncope [Unknown]
  - Thrombocytopenia [Unknown]
  - Incontinence [Unknown]
  - Decreased appetite [Unknown]
